FAERS Safety Report 5797603-9 (Version None)
Quarter: 2008Q2

REPORT INFORMATION
  Report Type: 
  Country: None (occurrence: None)
  Receive Date: 20080618
  Receipt Date: 20080404
  Transmission Date: 20081010
  Serious: Yes (Other)
  Sender: FDA-Public Use
  Company Number: 200812149US

PATIENT
  Age: 53 Year
  Sex: Male

DRUGS (9)
  1. LANTUS [Suspect]
     Indication: TYPE 2 DIABETES MELLITUS
     Dosage: 40 U BID
  2. XANAX [Concomitant]
  3. METFORMIN HCL [Concomitant]
  4. AMITRIPTYLINE HCL [Concomitant]
  5. VALSARTAN (DIOVANE) [Concomitant]
  6. CREATINE [Concomitant]
  7. GINSENG EXTRACT [Concomitant]
  8. PSYLLIUM HYDROPHILIC MUCILLOID (METAMUCIL) [Concomitant]
  9. MACROGOL (MIRALAX) [Concomitant]

REACTIONS (6)
  - ABDOMINAL DISTENSION [None]
  - ABDOMINAL PAIN [None]
  - BLOOD GLUCOSE INCREASED [None]
  - GLYCOSYLATED HAEMOGLOBIN INCREASED [None]
  - HYPOGLYCAEMIA [None]
  - MEDICATION ERROR [None]
